FAERS Safety Report 12885075 (Version 1)
Quarter: 2016Q4

REPORT INFORMATION
  Report Type: Report from Study
  Country: BR (occurrence: BR)
  Receive Date: 20161026
  Receipt Date: 20161026
  Transmission Date: 20170207
  Serious: Yes (Other)
  Sender: FDA-Public Use
  Company Number: PHHY2016BR145790

PATIENT
  Sex: Female
  Weight: 67 kg

DRUGS (3)
  1. ALOIS [Concomitant]
     Active Substance: MEMANTINE
     Indication: DIZZINESS
     Dosage: 10 MG, BID
     Route: 048
  2. GALVUS MET [Suspect]
     Active Substance: METFORMIN HYDROCHLORIDE\VILDAGLIPTIN
     Indication: DIABETES MELLITUS
     Dosage: 1 DF, BID(METFORMIN 850 MG/VILDAGLIPTIN 50MG)
     Route: 048
  3. EXELON PATCH [Suspect]
     Active Substance: RIVASTIGMINE
     Indication: DIZZINESS
     Dosage: 4.6 MG, QD PATCH 5 (CM2)
     Route: 062

REACTIONS (16)
  - Weight decreased [Unknown]
  - Body height decreased [Unknown]
  - Product use issue [Unknown]
  - Speech disorder [Unknown]
  - Crying [Unknown]
  - Depression [Unknown]
  - Alopecia [Unknown]
  - Spinal deformity [Unknown]
  - Weight increased [Unknown]
  - Labyrinthitis [Unknown]
  - Memory impairment [Unknown]
  - Blood pressure increased [Unknown]
  - Diabetes mellitus [Unknown]
  - Cerebrovascular accident [Unknown]
  - Swelling face [Not Recovered/Not Resolved]
  - Eye swelling [Not Recovered/Not Resolved]
